FAERS Safety Report 8321583-5 (Version None)
Quarter: 2012Q2

REPORT INFORMATION
  Report Type: 
  Country: None (occurrence: None)
  Receive Date: 20120430
  Receipt Date: 20120416
  Transmission Date: 20120825
  Serious: Yes (Hospitalization)
  Sender: FDA-Public Use
  Company Number: US-VERTEX PHARMACEUTICALS INC.-AE-2012-005492

PATIENT
  Sex: Female

DRUGS (2)
  1. IVACAFTOR [Suspect]
     Indication: CYSTIC FIBROSIS
     Route: 048
     Dates: start: 20120201
  2. CREON [Concomitant]

REACTIONS (8)
  - LYMPHADENOPATHY [None]
  - PHARYNGEAL OEDEMA [None]
  - DEEP VEIN THROMBOSIS [None]
  - MYALGIA [None]
  - ABDOMINAL PAIN [None]
  - BACK PAIN [None]
  - ABDOMINAL DISTENSION [None]
  - MUSCLE SPASMS [None]
